FAERS Safety Report 6802727-0 (Version None)
Quarter: 2010Q2

REPORT INFORMATION
  Report Type: 
  Country: None (occurrence: None)
  Receive Date: 20100628
  Receipt Date: 20100615
  Transmission Date: 20101027
  Serious: Yes (Other)
  Sender: FDA-Public Use
  Company Number: US-ELI_LILLY_AND_COMPANY-US201005000161

PATIENT
  Age: 81 Year
  Sex: Female

DRUGS (1)
  1. FORTEO [Suspect]

REACTIONS (4)
  - COMPRESSION FRACTURE [None]
  - MUSCULOSKELETAL DISCOMFORT [None]
  - NAUSEA [None]
  - SURGERY [None]
